FAERS Safety Report 8797834 (Version 2)
Quarter: 2012Q4

REPORT INFORMATION
  Report Type: Report from Study
  Country: US (occurrence: US)
  Receive Date: 20120920
  Receipt Date: 20121203
  Transmission Date: 20130627
  Serious: Yes (Death)
  Sender: FDA-Public Use
  Company Number: US-BIOGENIDEC-2012BI037323

PATIENT
  Age: 55 Year
  Sex: Male

DRUGS (10)
  1. TYSABRI [Suspect]
     Indication: MULTIPLE SCLEROSIS
     Route: 042
     Dates: start: 20080804, end: 20110607
  2. AMPYRA [Concomitant]
     Indication: MULTIPLE SCLEROSIS
     Route: 048
     Dates: start: 20110202, end: 20120728
  3. COPAXONE [Concomitant]
     Indication: MULTIPLE SCLEROSIS
     Dates: start: 20120401, end: 20120728
  4. DARVON [Concomitant]
     Indication: PAIN
     Route: 048
     Dates: start: 20100826, end: 201108
  5. FLEXERIL [Concomitant]
     Indication: MUSCLE SPASMS
     Route: 048
     Dates: start: 20100830, end: 20120728
  6. KADIAN [Concomitant]
     Indication: PAIN
     Route: 048
     Dates: start: 20100826, end: 20120728
  7. LEXAPRO [Concomitant]
     Indication: DEPRESSION
     Route: 048
     Dates: start: 20100826, end: 20120728
  8. LISINOPRIL [Concomitant]
     Indication: HYPERTENSION
     Route: 048
     Dates: start: 20100826, end: 20120728
  9. METHYLPREDISOLONE [Concomitant]
     Indication: MULTIPLE SCLEROSIS
     Route: 048
     Dates: start: 20110610, end: 20110615
  10. TEMAZEPAM [Concomitant]
     Indication: INSOMNIA
     Route: 048
     Dates: start: 20110610, end: 20120728

REACTIONS (1)
  - Death [Fatal]
